FAERS Safety Report 9776484 (Version 1)
Quarter: 2013Q4

REPORT INFORMATION
  Report Type: Spontaneous
  Country: HR (occurrence: HR)
  Receive Date: 20131220
  Receipt Date: 20131220
  Transmission Date: 20140711
  Serious: Yes (Hospitalization)
  Sender: FDA-Public Use
  Company Number: HR-ABBVIE-13P-216-1181125-00

PATIENT
  Age: 4 Year
  Sex: Female

DRUGS (8)
  1. DEPAKINE CHRONO [Suspect]
     Indication: EPILEPSY
     Route: 048
     Dates: start: 20131010, end: 20131113
  2. DIFETOIN [Suspect]
     Indication: EPILEPSY
     Route: 048
     Dates: start: 20131016, end: 20131114
  3. CLONAZEPAM [Suspect]
     Indication: EPILEPSY
     Route: 048
     Dates: start: 20131018
  4. MEDROL [Suspect]
     Indication: PRODUCT USED FOR UNKNOWN INDICATION
     Route: 048
     Dates: start: 20131028
  5. CEFTRIAXONE SODIUM [Suspect]
     Indication: BACTERAEMIA
     Route: 042
     Dates: start: 20131104, end: 20131105
  6. AZITHROMYCIN [Concomitant]
     Indication: PRODUCT USED FOR UNKNOWN INDICATION
     Dates: start: 20131106, end: 20131109
  7. METHYLPREDNISOLONE SODIUM SUCCINATE [Concomitant]
     Indication: PRODUCT USED FOR UNKNOWN INDICATION
     Dates: start: 20131022, end: 20131027
  8. ACICLOVIR [Concomitant]
     Indication: PRODUCT USED FOR UNKNOWN INDICATION
     Dates: start: 20131018, end: 20131027

REACTIONS (11)
  - Eyelid oedema [Unknown]
  - Lip oedema [Unknown]
  - Aphthous stomatitis [Unknown]
  - Genital ulceration [Unknown]
  - Pyrexia [Recovered/Resolved]
  - Rash maculo-papular [Unknown]
  - Eosinophil percentage increased [Unknown]
  - Alanine aminotransferase increased [Unknown]
  - Aspartate aminotransferase increased [Unknown]
  - Gamma-glutamyltransferase increased [Unknown]
  - Blood lactate dehydrogenase increased [Unknown]
